FAERS Safety Report 9699017 (Version 2)
Quarter: 2013Q4

REPORT INFORMATION
  Report Type: Spontaneous
  Country: US (occurrence: US)
  Receive Date: 20131120
  Receipt Date: 20131218
  Transmission Date: 20140711
  Serious: Yes (Other)
  Sender: FDA-Public Use
  Company Number: US-ELI_LILLY_AND_COMPANY-US201311003715

PATIENT
  Sex: Female

DRUGS (2)
  1. FORTEO [Suspect]
     Indication: PRODUCT USED FOR UNKNOWN INDICATION
     Dosage: UNK, QD
     Route: 065
  2. FORTEO [Suspect]
     Dosage: UNK UNK, QD
     Route: 065

REACTIONS (2)
  - Blindness [Unknown]
  - Incorrect dose administered [Unknown]
